FAERS Safety Report 23052058 (Version 2)
Quarter: 2024Q1

REPORT INFORMATION
  Report Type: Report from Study
  Country: US (occurrence: US)
  Receive Date: 20231010
  Receipt Date: 20240101
  Transmission Date: 20240410
  Serious: Yes (Death, Hospitalization, Other)
  Sender: FDA-Public Use
  Company Number: US-BAUSCH-BL-2023-014925

PATIENT
  Age: 72 Year
  Sex: Female

DRUGS (1)
  1. XIFAXAN [Suspect]
     Active Substance: RIFAXIMIN
     Indication: Hepatic encephalopathy
     Dosage: DURATION 41 MONTHS
     Route: 048
     Dates: end: 2023

REACTIONS (6)
  - Death [Fatal]
  - Post procedural sepsis [Unknown]
  - Hepatic cirrhosis [Unknown]
  - Disease progression [Unknown]
  - Ammonia increased [Unknown]
  - Blood lactic acid increased [Unknown]

NARRATIVE: CASE EVENT DATE: 20230101
